FAERS Safety Report 26143444 (Version 1)
Quarter: 2025Q4

REPORT INFORMATION
  Report Type: Report from Study
  Country: AR (occurrence: AR)
  Receive Date: 20251211
  Receipt Date: 20251211
  Transmission Date: 20260118
  Serious: Yes (Hospitalization)
  Sender: TAKEDA
  Company Number: AR-TAKEDA-2025TUS110461

PATIENT
  Age: 5 Year
  Sex: Male

DRUGS (3)
  1. ANTIHEMOPHILIC FACTOR, HUMAN RECOMBINANT [Suspect]
     Active Substance: ANTIHEMOPHILIC FACTOR, HUMAN RECOMBINANT
     Indication: Haemophilia
     Dosage: 1000 INTERNATIONAL UNIT, 2/WEEK
  2. ANTIHEMOPHILIC FACTOR, HUMAN RECOMBINANT [Suspect]
     Active Substance: ANTIHEMOPHILIC FACTOR, HUMAN RECOMBINANT
  3. ANTIHEMOPHILIC FACTOR, HUMAN RECOMBINANT [Suspect]
     Active Substance: ANTIHEMOPHILIC FACTOR, HUMAN RECOMBINANT

REACTIONS (1)
  - Gastroenteritis [Recovering/Resolving]
